FAERS Safety Report 11742591 (Version 1)
Quarter: 2015Q4

REPORT INFORMATION
  Report Type: Spontaneous
  Country: US (occurrence: None)
  Receive Date: 20151113
  Receipt Date: 20151113
  Transmission Date: 20160304
  Serious: Yes (Hospitalization)
  Sender: FDA-Public Use
  Company Number: None

PATIENT
  Age: 16 Year
  Sex: Male
  Weight: 59 kg

DRUGS (7)
  1. HYDROCORTISONE. [Suspect]
     Active Substance: HYDROCORTISONE
     Dates: end: 20150818
  2. METHOTREXATE [Suspect]
     Active Substance: METHOTREXATE
     Dates: end: 20150817
  3. PREDNISONE. [Suspect]
     Active Substance: PREDNISONE
     Dates: end: 20150822
  4. CYCLOPHOSPHAMIDE. [Suspect]
     Active Substance: CYCLOPHOSPHAMIDE
     Dates: end: 20150819
  5. DOXORUBICIN HYDROCLORIDE [Suspect]
     Active Substance: DOXORUBICIN HYDROCHLORIDE
     Dates: end: 20150818
  6. VINCRISTINE SULFATE. [Suspect]
     Active Substance: VINCRISTINE SULFATE
     Dates: end: 20150817
  7. CYTARABINE. [Suspect]
     Active Substance: CYTARABINE
     Dates: end: 20150818

REACTIONS (11)
  - Pyrexia [None]
  - Febrile neutropenia [None]
  - Azotaemia [None]
  - Staphylococcal infection [None]
  - Asthenia [None]
  - Fungal infection [None]
  - Pseudomonas infection [None]
  - Rhinorrhoea [None]
  - Septic shock [None]
  - Myalgia [None]
  - Cough [None]

NARRATIVE: CASE EVENT DATE: 20150830
